FAERS Safety Report 9497031 (Version 1)
Quarter: 2013Q3

REPORT INFORMATION
  Report Type: Spontaneous
  Country: FR (occurrence: None)
  Receive Date: 20130830
  Receipt Date: 20130830
  Transmission Date: 20140515
  Serious: Yes (Life-Threatening)
  Sender: FDA-Public Use
  Company Number: 1874594

PATIENT
  Age: 77 Year
  Sex: Female

DRUGS (6)
  1. CARBOPLATIN [Suspect]
     Indication: NON-SMALL CELL LUNG CANCER
     Dosage: 427 MG MILLIGRAM(S) (UNKNOWN), INTRAVENOUS (NOT OTHERWISE SPECIFIED)
     Route: 042
     Dates: start: 20130723, end: 20130723
  2. PACLITAXEL [Suspect]
     Indication: NON-SMALL CELL LUNG CANCER
     Dosage: 259 MG MILLIGRAM(S) (UNKNOWN) INTRAVENOUS (NOT OTHEWISE SPECIFIED)
     Route: 042
     Dates: start: 20130723, end: 20130723
  3. PRADAXA [Concomitant]
  4. CORDARONE [Concomitant]
  5. LYRICA [Concomitant]
  6. NOCTAMIDE [Concomitant]

REACTIONS (9)
  - Vomiting [None]
  - Diarrhoea [None]
  - Decreased appetite [None]
  - Pyrexia [None]
  - Hypotension [None]
  - Febrile bone marrow aplasia [None]
  - Abdominal sepsis [None]
  - Pseudomonas test positive [None]
  - Culture urine positive [None]
